FAERS Safety Report 18123156 (Version 1)
Quarter: 2020Q3

REPORT INFORMATION
  Report Type: Spontaneous
  Country: GB (occurrence: GB)
  Receive Date: 20200807
  Receipt Date: 20200807
  Transmission Date: 20201103
  Serious: Yes (Other)
  Sender: FDA-Public Use
  Company Number: GB-PFIZER INC-2020295674

PATIENT
  Age: 60 Year
  Sex: Female

DRUGS (12)
  1. DROPERIDOL. [Concomitant]
     Active Substance: DROPERIDOL
     Indication: INDUCTION OF ANAESTHESIA
     Dosage: 5 MG
  2. ATRACURIUM BESILATE [Suspect]
     Active Substance: ATRACURIUM BESYLATE
     Indication: SURGERY
  3. ATRACURIUM BESILATE [Suspect]
     Active Substance: ATRACURIUM BESYLATE
     Indication: INDUCTION OF ANAESTHESIA
     Dosage: 35 MG (0.57 MG/KG)
  4. THIOPENTONE [THIOPENTAL] [Concomitant]
     Active Substance: THIOPENTAL
     Indication: INDUCTION OF ANAESTHESIA
     Dosage: 300 MG
  5. DROPERIDOL. [Concomitant]
     Active Substance: DROPERIDOL
     Indication: SURGERY
  6. OXYGEN. [Concomitant]
     Active Substance: OXYGEN
     Indication: MAINTENANCE OF ANAESTHESIA
     Dosage: UNK
  7. FENTANYL. [Concomitant]
     Active Substance: FENTANYL
     Indication: INDUCTION OF ANAESTHESIA
     Dosage: 200 UG
  8. THIOPENTONE [THIOPENTAL] [Concomitant]
     Active Substance: THIOPENTAL
     Indication: SURGERY
  9. DIAZEPAM. [Concomitant]
     Active Substance: DIAZEPAM
     Indication: SURGERY
     Dosage: 10 MG (TWO HOURS BEFORE SURGERY)
     Route: 048
  10. NITROUS OXIDE. [Concomitant]
     Active Substance: NITROUS OXIDE
     Indication: MAINTENANCE OF ANAESTHESIA
     Dosage: UNK
  11. FENTANYL. [Concomitant]
     Active Substance: FENTANYL
     Indication: SURGERY
  12. DIAZEPAM. [Concomitant]
     Active Substance: DIAZEPAM
     Indication: PREMEDICATION

REACTIONS (1)
  - Nodal arrhythmia [Recovered/Resolved]
